FAERS Safety Report 17508986 (Version 5)
Quarter: 2021Q2

REPORT INFORMATION
  Report Type: Other
  Country: DE (occurrence: DE)
  Receive Date: 20200306
  Receipt Date: 20210623
  Transmission Date: 20210716
  Serious: Yes (Other)
  Sender: FDA-Public Use
  Company Number: DE-ROCHE-2112938

PATIENT
  Age: 62 Year
  Sex: Female
  Weight: 85 kg

DRUGS (20)
  1. ENALAPRIL [Concomitant]
     Active Substance: ENALAPRIL
     Dosage: 1?0?0.5
  2. OCREVUS [Suspect]
     Active Substance: OCRELIZUMAB
     Dosage: 5TH INFUSION
     Route: 042
     Dates: start: 20191030
  3. OCREVUS [Suspect]
     Active Substance: OCRELIZUMAB
     Dosage: 6TH INFUSION
     Route: 042
     Dates: start: 20200511
  4. RISEDRONIC ACID [Concomitant]
     Active Substance: RISEDRONIC ACID
  5. OCREVUS [Suspect]
     Active Substance: OCRELIZUMAB
     Dosage: 4TH INFUSION
     Route: 042
     Dates: start: 20190424
  6. TORASEMIDE [Concomitant]
     Active Substance: TORSEMIDE
     Route: 065
  7. ENALAPRIL [Concomitant]
     Active Substance: ENALAPRIL
  8. ENALAPRIL [Concomitant]
     Active Substance: ENALAPRIL
  9. AMLODIPIN [Concomitant]
     Active Substance: AMLODIPINE BESYLATE
  10. ENALAPRIL [Concomitant]
     Active Substance: ENALAPRIL
  11. GABAPENTIN. [Concomitant]
     Active Substance: GABAPENTIN
  12. OCREVUS [Suspect]
     Active Substance: OCRELIZUMAB
     Indication: PRIMARY PROGRESSIVE MULTIPLE SCLEROSIS
     Route: 042
     Dates: start: 20180410
  13. OCREVUS [Suspect]
     Active Substance: OCRELIZUMAB
     Dosage: 7TH INFUSION
     Route: 042
     Dates: start: 20201109
  14. DEKRISTOL [Concomitant]
     Active Substance: CHOLECALCIFEROL
     Dosage: EVERY 2 DAYS
  15. CARBAMAZEPINE. [Concomitant]
     Active Substance: CARBAMAZEPINE
  16. GABAPENTIN. [Concomitant]
     Active Substance: GABAPENTIN
     Dosage: 300 UNIT NOT REPORTED
  17. OCREVUS [Suspect]
     Active Substance: OCRELIZUMAB
     Indication: RELAPSING-REMITTING MULTIPLE SCLEROSIS
     Dosage: 3RD INFUSION
     Route: 042
     Dates: start: 20181010
  18. MOXONIDIN [Suspect]
     Active Substance: MOXONIDINE
     Indication: BLOOD PRESSURE INCREASED
     Route: 065
  19. MOXONIDIN [Suspect]
     Active Substance: MOXONIDINE
     Route: 065
  20. OPIPRAM [Concomitant]
     Active Substance: OPIPRAMOL HYDROCHLORIDE

REACTIONS (10)
  - Herpes zoster [Recovered/Resolved]
  - Blood pressure increased [Recovering/Resolving]
  - Chills [Recovered/Resolved]
  - Plantar fasciitis [Recovered/Resolved]
  - Feeling cold [Recovered/Resolved]
  - Blood pressure decreased [Recovered/Resolved]
  - Erythema [Recovered/Resolved]
  - Palpitations [Unknown]
  - Fatigue [Recovered/Resolved]
  - Neuralgia [Not Recovered/Not Resolved]

NARRATIVE: CASE EVENT DATE: 20180410
